FAERS Safety Report 20115697 (Version 1)
Quarter: 2021Q4

REPORT INFORMATION
  Report Type: Spontaneous
  Country: FR (occurrence: FR)
  Receive Date: 20211126
  Receipt Date: 20211126
  Transmission Date: 20220303
  Serious: Yes (Congenital Anomaly, Other)
  Sender: FDA-Public Use
  Company Number: FR-AFSSAPS-TO20218680

PATIENT

DRUGS (2)
  1. BROMAZEPAM [Suspect]
     Active Substance: BROMAZEPAM
     Indication: Product used for unknown indication
     Dosage: 4 MILLIGRAM, EVERY WEEK
     Route: 064
     Dates: start: 20210301
  2. MIRTAZAPINE [Suspect]
     Active Substance: MIRTAZAPINE
     Indication: Foetal exposure during pregnancy
     Dosage: 22 MILLIGRAM, ONCE A DAY
     Route: 064
     Dates: start: 20210301

REACTIONS (3)
  - Multiple congenital abnormalities [Not Recovered/Not Resolved]
  - Dandy-Walker syndrome [Unknown]
  - Foetal exposure during pregnancy [Unknown]

NARRATIVE: CASE EVENT DATE: 20210301
